FAERS Safety Report 8943995 (Version 1)
Quarter: 2012Q4

REPORT INFORMATION
  Report Type: Spontaneous
  Country: US (occurrence: None)
  Receive Date: 20121205
  Receipt Date: 20121205
  Transmission Date: 20130627
  Serious: Yes (Death)
  Sender: FDA-Public Use
  Company Number: None

PATIENT
  Age: 67 Year
  Sex: Male
  Weight: 139.71 kg

DRUGS (1)
  1. VITAMIN K [Suspect]
     Indication: BLOOD DISORDER
     Dosage: don^t know was given in hospit
     Dates: start: 20120821, end: 20120821

REACTIONS (8)
  - Chills [None]
  - Pyrexia [None]
  - Vomiting [None]
  - Cough [None]
  - Decreased appetite [None]
  - Malaise [None]
  - Agitation [None]
  - Insomnia [None]
